FAERS Safety Report 8824110 (Version 1)
Quarter: 2012Q4

REPORT INFORMATION
  Report Type: 
  Country: US (occurrence: US)
  Receive Date: 20121004
  Receipt Date: 20121004
  Transmission Date: 20130627
  Serious: No
  Sender: FDA-Public Use
  Company Number: US-009507513-1209USA009268

PATIENT
  Age: 56 Year
  Sex: Female

DRUGS (13)
  1. PEGINTRON [Suspect]
     Indication: HEPATITIS C
     Dosage: 120 Microgram, qw
     Dates: start: 201204
  2. HYDROCHLOROTHIAZIDE [Concomitant]
  3. LEVOTHYROXINE SODIUM [Concomitant]
  4. FLUOXETINE [Concomitant]
  5. BUSPIRONE HYDROCHLORIDE [Concomitant]
  6. EUPROCIN HYDROCHLORIDE [Concomitant]
  7. LAMICTAL [Concomitant]
  8. MORPHINE SULFATE [Concomitant]
  9. RIBASPHERE [Suspect]
  10. OXYCODONE [Concomitant]
  11. SUMATRIPTAN [Concomitant]
  12. DICYCLOMINE HYDROCHLORIDE [Concomitant]
  13. CLONAZEPAM [Concomitant]

REACTIONS (3)
  - Injection site erythema [Recovered/Resolved]
  - Underdose [Unknown]
  - Incorrect storage of drug [Unknown]
